FAERS Safety Report 7079147-X (Version None)
Quarter: 2010Q4

REPORT INFORMATION
  Report Type: 
  Country: None (occurrence: None)
  Receive Date: 20101102
  Receipt Date: 20101027
  Transmission Date: 20110411
  Serious: Yes (Hospitalization)
  Sender: FDA-Public Use
  Company Number: A0889333A

PATIENT
  Sex: Female

DRUGS (2)
  1. COREG [Suspect]
     Dosage: 6.25MG UNKNOWN
     Route: 065
     Dates: start: 20100908
  2. VENTOLIN [Suspect]
     Dosage: 90MCG UNKNOWN
     Route: 065
     Dates: start: 20100908

REACTIONS (1)
  - BLOOD PRESSURE ABNORMAL [None]
